FAERS Safety Report 17297785 (Version 1)
Quarter: 2020Q1

REPORT INFORMATION
  Report Type: Spontaneous
  Country: GB (occurrence: GB)
  Receive Date: 20200121
  Receipt Date: 20200121
  Transmission Date: 20200409
  Serious: Yes (Death, Other)
  Sender: FDA-Public Use
  Company Number: NVSC2020GB010834

PATIENT
  Age: 40 Year
  Sex: Female

DRUGS (1)
  1. GILENYA [Suspect]
     Active Substance: FINGOLIMOD HYDROCHLORIDE
     Indication: RELAPSING-REMITTING MULTIPLE SCLEROSIS
     Dosage: UNK
     Route: 065

REACTIONS (6)
  - Disease progression [Fatal]
  - Motor dysfunction [Fatal]
  - Tumefactive multiple sclerosis [Fatal]
  - Rebound effect [Fatal]
  - Hemiparesis [Fatal]
  - Encephalopathy [Fatal]
